FAERS Safety Report 20684457 (Version 3)
Quarter: 2023Q1

REPORT INFORMATION
  Report Type: Spontaneous
  Country: US (occurrence: US)
  Receive Date: 20220407
  Receipt Date: 20230124
  Transmission Date: 20230417
  Serious: No
  Sender: FDA-Public Use
  Company Number: US-PFIZER INC-2021238827

PATIENT
  Age: 71 Year
  Sex: Male

DRUGS (2)
  1. VYNDAMAX [Suspect]
     Active Substance: TAFAMIDIS
     Dosage: 61 MG
  2. VYNDAMAX [Suspect]
     Active Substance: TAFAMIDIS
     Dosage: 61 MG, ALTERNATE DAY (TOOK ONE EVERY OTHER DAY)
     Dates: start: 20210910

REACTIONS (4)
  - Hypoacusis [Unknown]
  - Malaise [Unknown]
  - Intentional product misuse [Unknown]
  - Intentional dose omission [Unknown]
